FAERS Safety Report 17067735 (Version 1)
Quarter: 2019Q4

REPORT INFORMATION
  Report Type: Other
  Country: AU (occurrence: AU)
  Receive Date: 20191122
  Receipt Date: 20191122
  Transmission Date: 20200122
  Serious: Yes (Other)
  Sender: FDA-Public Use
  Company Number: AU-GE HEALTHCARE LIFE SCIENCES-2019CSU005879

PATIENT

DRUGS (2)
  1. OMNIPAQUE [Suspect]
     Active Substance: IOHEXOL
     Indication: PRODUCT USED FOR UNKNOWN INDICATION
  2. OMNIPAQUE [Suspect]
     Active Substance: IOHEXOL
     Indication: DIAGNOSTIC PROCEDURE
     Dosage: UNK, SINGLE
     Route: 065

REACTIONS (6)
  - Nasal congestion [Unknown]
  - Swelling face [Unknown]
  - Lacrimation increased [Unknown]
  - Dysphonia [Unknown]
  - Throat irritation [Unknown]
  - Sneezing [Unknown]
